FAERS Safety Report 5859235-3 (Version None)
Quarter: 2008Q3

REPORT INFORMATION
  Report Type: 
  Country: None (occurrence: None)
  Receive Date: 20080822
  Receipt Date: 20080811
  Transmission Date: 20090109
  Serious: Yes (Other)
  Sender: FDA-Public Use
  Company Number: RENA-1000073

PATIENT
  Sex: Male

DRUGS (1)
  1. RENAGEL [Suspect]
     Indication: HYPERPHOSPHATAEMIA
     Dosage: 14.4 G, ORAL
     Route: 048

REACTIONS (3)
  - DRY MOUTH [None]
  - DYSGEUSIA [None]
  - TRANSPLANT [None]
